FAERS Safety Report 6471831-1 (Version None)
Quarter: 2009Q4

REPORT INFORMATION
  Report Type: 
  Country: None (occurrence: None)
  Receive Date: 20091203
  Receipt Date: 20080408
  Transmission Date: 20100525
  Serious: Yes (Hospitalization, Other)
  Sender: FDA-Public Use
  Company Number: DE-ELI_LILLY_AND_COMPANY-DE200803000782

PATIENT
  Age: 52 Year
  Sex: Male

DRUGS (10)
  1. BYETTA [Suspect]
     Indication: TYPE 2 DIABETES MELLITUS
     Dosage: 5 UG, 2/D
     Route: 058
     Dates: start: 20080207, end: 20080221
  2. LISINOPRIL [Concomitant]
     Dosage: 10 MG, 2/D
  3. SYMBICORT [Concomitant]
     Dosage: 1 D/F, 2/D
  4. VALORON [Concomitant]
     Dosage: 20 D/F, 3/D
     Route: 048
  5. CARVEDILOL [Concomitant]
     Dosage: 6.25 MG, UNKNOWN
  6. CARVEDILOL [Concomitant]
     Dosage: 3.125 MG, UNKNOWN
  7. PANTOZOL [Concomitant]
     Dosage: 20 MG, DAILY (1/D)
  8. SPIRIVA [Concomitant]
     Dosage: 1 D/F, DAILY (1/D)
  9. METFORMIN HCL [Concomitant]
     Dosage: 1000 MG, 2/D
  10. SIMVASTATIN [Concomitant]
     Dosage: 40 MG, DAILY (1/D)

REACTIONS (2)
  - PANCREATIC PSEUDOCYST [None]
  - PANCREATITIS ACUTE [None]
